FAERS Safety Report 7549780-7 (Version None)
Quarter: 2011Q2

REPORT INFORMATION
  Report Type: 
  Country: None (occurrence: None)
  Receive Date: 20110615
  Receipt Date: 20060303
  Transmission Date: 20111010
  Serious: Yes (Hospitalization)
  Sender: FDA-Public Use
  Company Number: PHNR2005AU01642

PATIENT
  Sex: Male

DRUGS (2)
  1. CLOZAPINE [Suspect]
     Dosage: 300 MG, QD
  2. CLOZAPINE [Suspect]
     Dosage: 12 MG, QD
     Dates: start: 19961009

REACTIONS (1)
  - CEREBROVASCULAR ACCIDENT [None]
